FAERS Safety Report 10910537 (Version 1)
Quarter: 2015Q1

REPORT INFORMATION
  Report Type: Spontaneous
  Country: US (occurrence: US)
  Receive Date: 20150312
  Receipt Date: 20150312
  Transmission Date: 20150721
  Serious: Yes (Hospitalization)
  Sender: FDA-Public Use
  Company Number: US-GE HEALTHCARE MEDICAL DIAGNOSTICS-VISP-PR-1503S-0058

PATIENT
  Age: 76 Year
  Sex: Male

DRUGS (7)
  1. VASOTEC [Concomitant]
     Active Substance: ENALAPRIL MALEATE
  2. FENTANYL. [Concomitant]
     Active Substance: FENTANYL
  3. HEPARIN [Concomitant]
     Active Substance: HEPARIN SODIUM
  4. VERSED [Concomitant]
     Active Substance: MIDAZOLAM HYDROCHLORIDE
  5. VISIPAQUE [Suspect]
     Active Substance: IODIXANOL
     Indication: DIAGNOSTIC PROCEDURE
  6. VISIPAQUE [Suspect]
     Active Substance: IODIXANOL
     Indication: ARTERIAL OCCLUSIVE DISEASE
     Route: 042
     Dates: start: 20150303, end: 20150303
  7. LABETATOL [Concomitant]

REACTIONS (9)
  - Respiratory distress [Unknown]
  - Pruritus [Unknown]
  - Chest pain [Unknown]
  - Cough [Unknown]
  - Nasal congestion [Unknown]
  - Dyspnoea [Unknown]
  - Wheezing [Unknown]
  - Heart rate increased [None]
  - Blood pressure increased [None]

NARRATIVE: CASE EVENT DATE: 20150303
